FAERS Safety Report 7371930-6 (Version None)
Quarter: 2011Q1

REPORT INFORMATION
  Report Type: 
  Country: None (occurrence: None)
  Receive Date: 20110324
  Receipt Date: 20100503
  Transmission Date: 20110831
  Serious: No
  Sender: FDA-Public Use
  Company Number: US-BAUSCH-2010BL002353

PATIENT
  Age: 70 Year
  Sex: Male

DRUGS (1)
  1. FLUNISOLIDE [Suspect]
     Indication: UPPER-AIRWAY COUGH SYNDROME
     Route: 045
     Dates: start: 20100430, end: 20100502

REACTIONS (2)
  - EYE IRRITATION [None]
  - NASAL DISCOMFORT [None]
